FAERS Safety Report 9682086 (Version 1)
Quarter: 2013Q4

REPORT INFORMATION
  Report Type: Spontaneous
  Country: GB (occurrence: GB)
  Receive Date: 20131111
  Receipt Date: 20131111
  Transmission Date: 20140711
  Serious: Yes (Other)
  Sender: FDA-Public Use
  Company Number: GB-ROCHE-1298951

PATIENT
  Age: 52 Year
  Sex: Female
  Weight: 60 kg

DRUGS (6)
  1. COPEGUS [Suspect]
     Indication: PRODUCT USED FOR UNKNOWN INDICATION
     Route: 048
     Dates: start: 20130816, end: 20131023
  2. INTERFERON ALFA-2A [Suspect]
     Indication: PRODUCT USED FOR UNKNOWN INDICATION
     Route: 058
     Dates: start: 20130816, end: 20131023
  3. INCIVO [Suspect]
     Indication: PRODUCT USED FOR UNKNOWN INDICATION
     Route: 048
     Dates: start: 20130816, end: 20131016
  4. FEXOFENADINE HYDROCHLORIDE [Concomitant]
  5. PROMETHAZINE HYDROCHLORIDE [Concomitant]
  6. ZOPICLONE [Concomitant]

REACTIONS (4)
  - Anaemia [Not Recovered/Not Resolved]
  - Face oedema [Unknown]
  - Rash [Not Recovered/Not Resolved]
  - Eczema [Unknown]
